FAERS Safety Report 4819144-5 (Version None)
Quarter: 2005Q4

REPORT INFORMATION
  Report Type: 
  Country: None (occurrence: None)
  Receive Date: 20051101
  Receipt Date: 20051021
  Transmission Date: 20060501
  Serious: Yes (Other)
  Sender: FDA-Public Use
  Company Number: 2005RR-00991

PATIENT
  Age: 35 Year

DRUGS (4)
  1. FLUOXETINE [Suspect]
     Indication: DEPRESSION
     Dosage: 60 MG, QD, ORAL
     Route: 048
     Dates: start: 20050601
  2. ZAPONEX (CLONAPINE) [Suspect]
     Indication: SCHIZOPHRENIA
     Dosage: 150 MG, BID, ORAL
     Route: 048
     Dates: start: 20050825
  3. HALOPERIDOL [Suspect]
     Indication: PSYCHOTIC DISORDER
     Dosage: 15 MG, BID, ORAL
     Route: 048
     Dates: start: 20050601
  4. OMEPRAZOLE [Concomitant]

REACTIONS (1)
  - NEUTROPHIL COUNT DECREASED [None]
